FAERS Safety Report 13125474 (Version 1)
Quarter: 2017Q1

REPORT INFORMATION
  Report Type: Spontaneous
  Country: US (occurrence: US)
  Receive Date: 20170118
  Receipt Date: 20170118
  Transmission Date: 20170428
  Serious: No
  Sender: FDA-Public Use
  Company Number: US-GALDERMA-US16008164

PATIENT
  Sex: Female

DRUGS (1)
  1. SOOLANTRA [Suspect]
     Active Substance: IVERMECTIN
     Indication: PRODUCT USED FOR UNKNOWN INDICATION
     Dosage: 1%
     Route: 061
     Dates: start: 201611

REACTIONS (4)
  - Skin exfoliation [Unknown]
  - Skin wrinkling [Unknown]
  - Skin tightness [Unknown]
  - Dry skin [Unknown]

NARRATIVE: CASE EVENT DATE: 201611
